FAERS Safety Report 4319083-2 (Version None)
Quarter: 2004Q1

REPORT INFORMATION
  Report Type: 
  Country: None (occurrence: None)
  Receive Date: 20040312
  Receipt Date: 20031104
  Transmission Date: 20041129
  Serious: Yes (Other)
  Sender: FDA-Public Use
  Company Number: 03-315-0749

PATIENT
  Age: 72 Year
  Sex: Female

DRUGS (6)
  1. DILTIAZEM HCI INJ,. 25MG, BEN VENUE LABS [Suspect]
     Indication: ATRIAL FIBRILLATION
     Dosage: IV PUSH AND INFUSION
  2. DILTIAZEM HCL INJ., 25 G, BEN VENUE LABS [Suspect]
  3. ATENOLOL [Concomitant]
  4. DIGOXIN [Concomitant]
  5. PROTONIX [Concomitant]
  6. COUMADIN [Concomitant]

REACTIONS (3)
  - INJECTION SITE BURNING [None]
  - INJECTION SITE PRURITUS [None]
  - RASH [None]
